FAERS Safety Report 16379309 (Version 1)
Quarter: 2019Q2

REPORT INFORMATION
  Report Type: Spontaneous
  Country: US (occurrence: US)
  Receive Date: 20190422
  Receipt Date: 20190422
  Transmission Date: 20190711
  Serious: Yes (Other)
  Sender: FDA-Public Use
  Company Number: None

PATIENT
  Age: 20 Year
  Sex: Female
  Weight: 50.6 kg

DRUGS (2)
  1. GCS-F (ZARXIO) [Concomitant]
     Dates: start: 20190405, end: 20190409
  2. CITRATE PHOSPHATE SOLUTION [Suspect]
     Active Substance: CITRATE PHOSPHATE DEXTROSE
     Indication: ANTICOAGULANT THERAPY
     Dosage: ?          OTHER FREQUENCY:ONCE;?
     Route: 042
     Dates: start: 20190410, end: 20190410

REACTIONS (1)
  - Hypocalcaemia [None]

NARRATIVE: CASE EVENT DATE: 20190410
